FAERS Safety Report 14460003 (Version 1)
Quarter: 2018Q1

REPORT INFORMATION
  Report Type: Spontaneous
  Country: US (occurrence: US)
  Receive Date: 20180130
  Receipt Date: 20180130
  Transmission Date: 20180509
  Serious: No
  Sender: FDA-Public Use
  Company Number: None

PATIENT

DRUGS (2)
  1. LITHIUM. [Suspect]
     Active Substance: LITHIUM
  2. HYDROXYZINE [Suspect]
     Active Substance: HYDROXYZINE HYDROCHLORIDE

REACTIONS (4)
  - Insomnia [None]
  - Hallucination, visual [None]
  - Panic attack [None]
  - Therapy cessation [None]
